FAERS Safety Report 4585689-9 (Version None)
Quarter: 2005Q1

REPORT INFORMATION
  Report Type: 
  Country: None (occurrence: None)
  Receive Date: 20050210
  Receipt Date: 20041013
  Transmission Date: 20050727
  Serious: Yes (Other)
  Sender: FDA-Public Use
  Company Number: 200510114BBE

PATIENT
  Sex: Male

DRUGS (4)
  1. KONYNE [Suspect]
     Indication: FACTOR IX DEFICIENCY
     Dates: start: 19870101, end: 19880101
  2. KONYNE-HAT [Suspect]
     Indication: FACTOR IX DEFICIENCY
     Dates: start: 19900101
  3. PROFILNINE [Suspect]
     Dates: start: 19880101, end: 19900101
  4. PROFILNINE [Suspect]
     Dates: start: 19880101, end: 19900101

REACTIONS (1)
  - HEPATITIS C VIRUS [None]
